FAERS Safety Report 25411082 (Version 2)
Quarter: 2025Q2

REPORT INFORMATION
  Report Type: Spontaneous
  Country: GB (occurrence: GB)
  Receive Date: 20250609
  Receipt Date: 20250611
  Transmission Date: 20250717
  Serious: Yes (Hospitalization, Disabling, Other)
  Sender: JOHNSON AND JOHNSON
  Company Number: None

PATIENT
  Age: 49 Year
  Sex: Female
  Weight: 57 kg

DRUGS (2)
  1. SPORANOX [Suspect]
     Active Substance: ITRACONAZOLE
     Indication: Onychomycosis
     Route: 048
     Dates: end: 20250507
  2. SPORANOX [Suspect]
     Active Substance: ITRACONAZOLE
     Indication: Adverse drug reaction

REACTIONS (8)
  - Deafness [Not Recovered/Not Resolved]
  - Spider vein [Not Recovered/Not Resolved]
  - Medication error [Unknown]
  - Headache [Unknown]
  - Tinnitus [Unknown]
  - Dizziness [Unknown]
  - Inflammation [Unknown]
  - Vertigo [Not Recovered/Not Resolved]

NARRATIVE: CASE EVENT DATE: 20250506
